FAERS Safety Report 24653861 (Version 2)
Quarter: 2025Q3

REPORT INFORMATION
  Report Type: Report from Study
  Country: IN (occurrence: IN)
  Receive Date: 20241122
  Receipt Date: 20250822
  Transmission Date: 20251021
  Serious: Yes (Other)
  Sender: INCYTE
  Company Number: IN-002147023-NVSC2024IN177064

PATIENT

DRUGS (2)
  1. RUXOLITINIB [Suspect]
     Active Substance: RUXOLITINIB
     Indication: Primary myelofibrosis
     Dosage: 20 MG, BID
  2. RUXOLITINIB [Suspect]
     Active Substance: RUXOLITINIB
     Dosage: 5 MG, BID

REACTIONS (10)
  - Hypertension [Unknown]
  - Myocardial ischaemia [Unknown]
  - Transferrin saturation increased [Unknown]
  - Leukopenia [Unknown]
  - Anaemia [Unknown]
  - Pain in extremity [Unknown]
  - Blood thyroid stimulating hormone increased [Unknown]
  - Splenomegaly [Unknown]
  - Wrong technique in product usage process [Unknown]
  - Vitamin D deficiency [Unknown]
